FAERS Safety Report 10952058 (Version 1)
Quarter: 2015Q1

REPORT INFORMATION
  Report Type: Spontaneous
  Country: US (occurrence: None)
  Receive Date: 20150323
  Receipt Date: 20150323
  Transmission Date: 20150721
  Serious: Yes (Death)
  Sender: FDA-Public Use
  Company Number: US-H14001-15-00436

PATIENT
  Age: 21 Year
  Sex: Female

DRUGS (8)
  1. CARISOPRODOL (CARISOPRODOL) UNKNOWN [Suspect]
     Active Substance: CARISOPRODOL
     Indication: PRODUCT USED FOR UNKNOWN INDICATION
  2. DOXYLAMINE (DOXYLAMINE) [Suspect]
     Active Substance: DOXYLAMINE
     Indication: PRODUCT USED FOR UNKNOWN INDICATION
  3. ORPHENADRINE (ORPHENADRINE) (ORPHENADRINE) [Suspect]
     Active Substance: ORPHENADRINE
     Indication: PRODUCT USED FOR UNKNOWN INDICATION
  4. MEPROBAMATE (MEPROBAMATE) [Suspect]
     Active Substance: MEPROBAMATE
     Indication: PRODUCT USED FOR UNKNOWN INDICATION
  5. FLUOXETINE (FLUOXETINE) UNKNOWN [Suspect]
     Active Substance: FLUOXETINE HYDROCHLORIDE
     Indication: PRODUCT USED FOR UNKNOWN INDICATION
  6. DEXTROMETHORPHAN (DEXTROMETHORPHAN) [Suspect]
     Active Substance: DEXTROMETHORPHAN
     Indication: PRODUCT USED FOR UNKNOWN INDICATION
  7. SUMATRIPTAN (SUMATRIPTAN) [Suspect]
     Active Substance: SUMATRIPTAN
     Indication: PRODUCT USED FOR UNKNOWN INDICATION
  8. HYDROXYZINE (HYDROXYZINE) UNKNOWN [Suspect]
     Active Substance: HYDROXYZINE HYDROCHLORIDE
     Indication: PRODUCT USED FOR UNKNOWN INDICATION

REACTIONS (2)
  - Toxicity to various agents [None]
  - Accidental death [None]
